FAERS Safety Report 5102715-9 (Version None)
Quarter: 2006Q3

REPORT INFORMATION
  Report Type: 
  Country: None (occurrence: None)
  Receive Date: 20060912
  Receipt Date: 20050728
  Transmission Date: 20061208
  Serious: Yes (Hospitalization)
  Sender: FDA-Public Use
  Company Number: AU-BRISTOL-MYERS SQUIBB COMPANY-13054655

PATIENT
  Age: 65 Year
  Sex: Male

DRUGS (5)
  1. ERBITUX [Suspect]
     Indication: COLORECTAL CANCER METASTATIC
     Dosage: INITIAL TX DATE: 11-JAN-05.
     Route: 042
     Dates: start: 20050713, end: 20050713
  2. IRINOTECAN HCL [Suspect]
     Indication: COLORECTAL CANCER METASTATIC
     Dosage: INITIAL TX DATE: 11-JAN-05.
     Route: 042
     Dates: start: 20050713, end: 20050713
  3. METFORMIN HYDROCHLORIDE [Concomitant]
     Dates: start: 20010101
  4. ASTRIX [Concomitant]
     Dates: start: 20010101
  5. SOTALOL HCL [Concomitant]
     Dates: start: 20010101

REACTIONS (6)
  - BALANOPOSTHITIS [None]
  - DYSURIA [None]
  - MOUTH ULCERATION [None]
  - PAIN MANAGEMENT [None]
  - SKIN FISSURES [None]
  - URINARY INCONTINENCE [None]
